FAERS Safety Report 6948278-4 (Version None)
Quarter: 2010Q3

REPORT INFORMATION
  Report Type: 
  Country: None (occurrence: None)
  Receive Date: 20100828
  Receipt Date: 20091023
  Transmission Date: 20110219
  Serious: No
  Sender: FDA-Public Use
  Company Number: US-ABBOTT-09P-163-0605425-00

PATIENT
  Sex: Male
  Weight: 97.61 kg

DRUGS (7)
  1. NIASPAN [Suspect]
     Indication: BLOOD CHOLESTEROL INCREASED
     Route: 048
     Dates: start: 20090601
  2. ASPIRIN [Suspect]
     Indication: PROPHYLAXIS
     Route: 048
     Dates: start: 20090901, end: 20091023
  3. ASPIRIN [Suspect]
     Indication: FLUSHING
  4. LIPITOR [Concomitant]
     Indication: BLOOD CHOLESTEROL INCREASED
     Route: 048
  5. AMBIEN [Concomitant]
     Indication: INSOMNIA
     Route: 048
  6. ASPIRIN [Concomitant]
     Route: 048
     Dates: end: 20090901
  7. ASPIRIN [Concomitant]

REACTIONS (1)
  - DYSPEPSIA [None]
